FAERS Safety Report 8924388 (Version 1)
Quarter: 2012Q4

REPORT INFORMATION
  Report Type: 
  Country: US (occurrence: US)
  Receive Date: 20121126
  Receipt Date: 20121126
  Transmission Date: 20130627
  Serious: No
  Sender: FDA-Public Use
  Company Number: US-MYLANLABS-2012S1010199

PATIENT
  Age: 29 Year
  Sex: Female

DRUGS (2)
  1. CLONAZEPAM [Suspect]
     Indication: ANXIETY
     Route: 048
  2. CLONAZEPAM [Suspect]
     Indication: PANIC DISORDER
     Route: 048

REACTIONS (1)
  - Productive cough [Not Recovered/Not Resolved]
